FAERS Safety Report 15261419 (Version 3)
Quarter: 2018Q4

REPORT INFORMATION
  Report Type: Spontaneous
  Country: FR (occurrence: FR)
  Receive Date: 20180809
  Receipt Date: 20180919
  Transmission Date: 20190204
  Serious: Yes (Hospitalization, Other)
  Sender: FDA-Public Use
  Company Number: FR-GLAXOSMITHKLINE-FR2018139926

PATIENT
  Age: 4 Year
  Sex: Male
  Weight: 18 kg

DRUGS (16)
  1. CALCIUM GLUCONATE. [Suspect]
     Active Substance: CALCIUM GLUCONATE
     Indication: GASTROINTESTINAL DISORDER
     Dosage: 30 ML, UNK
     Route: 042
     Dates: start: 201807
  2. CALCIUM GLUCONATE. [Suspect]
     Active Substance: CALCIUM GLUCONATE
     Indication: PARENTERAL NUTRITION
     Dosage: UNK
     Route: 065
  3. SODIUM LACTATE. [Suspect]
     Active Substance: SODIUM LACTATE
     Indication: PARENTERAL NUTRITION
     Dosage: UNK
     Route: 065
  4. POTASSIUM CHLORIDE. [Suspect]
     Active Substance: POTASSIUM CHLORIDE
     Indication: PARENTERAL NUTRITION
     Dosage: UNK
     Route: 065
     Dates: start: 201807
  5. SODIUM CHLORIDE. [Suspect]
     Active Substance: SODIUM CHLORIDE
     Indication: PARENTERAL NUTRITION
     Dosage: 26 ML, UNK
     Route: 042
     Dates: start: 201807
  6. SODIUM LACTATE. [Suspect]
     Active Substance: SODIUM LACTATE
     Indication: GASTROINTESTINAL DISORDER
     Dosage: 122 ML, UNK
     Route: 042
     Dates: start: 201807
  7. POTASSIUM CHLORIDE. [Suspect]
     Active Substance: POTASSIUM CHLORIDE
     Indication: GASTROINTESTINAL DISORDER
     Dosage: 25 ML, UNK
     Route: 042
  8. MONOPOTASSIUM PHOSPHATE [Suspect]
     Active Substance: POTASSIUM PHOSPHATE, MONOBASIC
     Indication: PARENTERAL NUTRITION
     Dosage: UNK
     Route: 065
  9. SODIUM CHLORIDE. [Suspect]
     Active Substance: SODIUM CHLORIDE
     Indication: GASTROINTESTINAL DISORDER
     Dosage: UNK
  10. GLUCOSE [Suspect]
     Active Substance: DEXTROSE
     Indication: PARENTERAL NUTRITION
     Dosage: 444 ML, UNK
     Route: 042
     Dates: start: 201807
  11. MAGNESIUM CHLORIDE. [Suspect]
     Active Substance: MAGNESIUM CHLORIDE
     Indication: GASTROINTESTINAL DISORDER
     Dosage: UNK
     Route: 065
  12. MONOPOTASSIUM PHOSPHATE [Suspect]
     Active Substance: POTASSIUM PHOSPHATE, MONOBASIC
     Indication: GASTROINTESTINAL DISORDER
     Dosage: 17 ML, UNK
     Route: 042
     Dates: start: 201807
  13. RANITIDINE. [Suspect]
     Active Substance: RANITIDINE
     Indication: PARENTERAL NUTRITION
     Dosage: UNK
     Route: 065
  14. MAGNESIUM CHLORIDE. [Suspect]
     Active Substance: MAGNESIUM CHLORIDE
     Indication: PARENTERAL NUTRITION
     Dosage: 16 ML, UNK
     Route: 042
     Dates: start: 201807
  15. RANITIDINE. [Suspect]
     Active Substance: RANITIDINE
     Indication: GASTROINTESTINAL DISORDER
     Dosage: 13 ML, UNK
     Route: 042
     Dates: start: 201807
  16. GLUCOSE [Suspect]
     Active Substance: DEXTROSE
     Indication: GASTROINTESTINAL DISORDER
     Dosage: UNK
     Route: 065

REACTIONS (6)
  - Staphylococcal bacteraemia [Recovering/Resolving]
  - Product commingling [Unknown]
  - Enterobacter bacteraemia [Recovering/Resolving]
  - Cough [Unknown]
  - Wrong patient received product [Unknown]
  - Device related infection [Recovered/Resolved]

NARRATIVE: CASE EVENT DATE: 201807
